FAERS Safety Report 16241511 (Version 2)
Quarter: 2019Q2

REPORT INFORMATION
  Report Type: Spontaneous
  Country: US (occurrence: US)
  Receive Date: 20190426
  Receipt Date: 20190514
  Transmission Date: 20190711
  Serious: No
  Sender: FDA-Public Use
  Company Number: US-HETERO CORPORATE-HET2019US00185

PATIENT
  Sex: Male

DRUGS (1)
  1. LOSARTAN. [Suspect]
     Active Substance: LOSARTAN
     Indication: HYPERTENSION
     Dosage: 100 MG
     Route: 065

REACTIONS (2)
  - Drug ineffective [Unknown]
  - Blood pressure increased [Unknown]
